FAERS Safety Report 18508001 (Version 1)
Quarter: 2020Q4

REPORT INFORMATION
  Report Type: Spontaneous
  Country: CH (occurrence: CH)
  Receive Date: 20201116
  Receipt Date: 20201116
  Transmission Date: 20210114
  Serious: Yes (Hospitalization)
  Sender: FDA-Public Use
  Company Number: CH-ELI_LILLY_AND_COMPANY-CH202011002995

PATIENT
  Age: 68 Year
  Sex: Female

DRUGS (3)
  1. ALIMTA [Suspect]
     Active Substance: PEMETREXED DISODIUM
     Indication: LUNG ADENOCARCINOMA
     Dosage: 1 DOSAGE FORM, DAILY
     Route: 048
     Dates: start: 20200918, end: 20201018
  2. CARBOPLATIN TEVA [Suspect]
     Active Substance: CARBOPLATIN
     Indication: LUNG ADENOCARCINOMA
     Dosage: 1 DOSAGE FORM, UNKNOWN
     Route: 048
     Dates: start: 20200918, end: 20201018
  3. KEYTRUDA [Suspect]
     Active Substance: PEMBROLIZUMAB
     Indication: LUNG ADENOCARCINOMA
     Dosage: 1 DOSAGE FORM, UNKNOWN
     Route: 048
     Dates: start: 20200918, end: 20201018

REACTIONS (2)
  - Liver injury [Recovering/Resolving]
  - Pyrexia [Recovering/Resolving]

NARRATIVE: CASE EVENT DATE: 20201002
